FAERS Safety Report 4809852-4 (Version None)
Quarter: 2005Q4

REPORT INFORMATION
  Report Type: 
  Country: None (occurrence: None)
  Receive Date: 20051024
  Receipt Date: 20051024
  Transmission Date: 20060501
  Serious: Yes (Hospitalization)
  Sender: FDA-Public Use
  Company Number: None

PATIENT
  Age: 63 Year
  Sex: Male
  Weight: 99.7913 kg

DRUGS (20)
  1. POTASSIUM CHLORIDE [Suspect]
     Indication: ELECTROLYTE SUBSTITUTION THERAPY
     Dosage: 40MEQ PO BID
     Route: 048
  2. LISINOPRIL [Suspect]
     Indication: HYPERTENSION
     Dosage: 5MG PO QD
     Route: 048
  3. SPIRONOLACTONE [Suspect]
     Indication: CARDIAC FAILURE CONGESTIVE
     Dosage: 25 MG PO QD
     Route: 048
  4. CITALOPRAM [Concomitant]
  5. FUROSEMIDE [Concomitant]
  6. HYDROXYZINE [Concomitant]
  7. INSULIN [Concomitant]
  8. WARFARIN [Concomitant]
  9. POTASSIUM CHLORIDE [Concomitant]
  10. DARVOCET [Concomitant]
  11. SPIRONOLACTONE [Concomitant]
  12. COMBIVENT [Concomitant]
  13. TERAZOSIN [Concomitant]
  14. LISINOPRIL [Concomitant]
  15. METOPROLOL [Concomitant]
  16. OMEPRAZOLE [Concomitant]
  17. QUETIPINE [Concomitant]
  18. LEVOTHYROXINE [Concomitant]
  19. LITHIUM [Concomitant]
  20. ZOCOR [Concomitant]

REACTIONS (8)
  - ACUTE PRERENAL FAILURE [None]
  - ASTHENIA [None]
  - ATRIOVENTRICULAR BLOCK FIRST DEGREE [None]
  - BLOOD CREATININE INCREASED [None]
  - DEHYDRATION [None]
  - DIARRHOEA [None]
  - ELECTROCARDIOGRAM QRS COMPLEX PROLONGED [None]
  - HYPERKALAEMIA [None]
